FAERS Safety Report 22121162 (Version 2)
Quarter: 2023Q2

REPORT INFORMATION
  Report Type: Spontaneous
  Country: CL (occurrence: CL)
  Receive Date: 20230321
  Receipt Date: 20230404
  Transmission Date: 20230722
  Serious: Yes (Death, Other)
  Sender: FDA-Public Use
  Company Number: CL-PFIZER INC-PV202300051775

PATIENT
  Age: 58 Year
  Sex: Female

DRUGS (1)
  1. SUTENT [Suspect]
     Active Substance: SUNITINIB MALATE
     Indication: Renal cancer metastatic
     Dosage: UNK
     Dates: end: 202007

REACTIONS (4)
  - Death [Fatal]
  - Renal failure [Unknown]
  - Neoplasm progression [Unknown]
  - Scar [Unknown]

NARRATIVE: CASE EVENT DATE: 20200701
